FAERS Safety Report 8319482-8 (Version None)
Quarter: 2012Q2

REPORT INFORMATION
  Report Type: 
  Country: None (occurrence: None)
  Receive Date: 20120427
  Receipt Date: 20120416
  Transmission Date: 20120825
  Serious: Yes (Other)
  Sender: FDA-Public Use
  Company Number: US-SANOFI-AVENTIS-2012SA026967

PATIENT
  Age: 63 Year
  Sex: Male

DRUGS (1)
  1. CORTISONE ACETATE [Suspect]

REACTIONS (1)
  - ANAPHYLACTIC REACTION [None]
